FAERS Safety Report 4761640-3 (Version None)
Quarter: 2005Q3

REPORT INFORMATION
  Report Type: 
  Country: None (occurrence: None)
  Receive Date: 20050826
  Receipt Date: 20041228
  Transmission Date: 20060218
  Serious: Yes (Death)
  Sender: FDA-Public Use
  Company Number: USA-2004-0018185

PATIENT
  Age: 35 Year
  Sex: Male

DRUGS (4)
  1. OXYCONTIN [Suspect]
  2. METHADONE HCL [Suspect]
  3. ALPRAZOLAM [Suspect]
  4. COCAINE (COCAINE) [Suspect]

REACTIONS (1)
  - DRUG ABUSER [None]
